FAERS Safety Report 11440155 (Version 1)
Quarter: 2015Q3

REPORT INFORMATION
  Report Type: Spontaneous
  Country: US (occurrence: US)
  Receive Date: 20150901
  Receipt Date: 20150901
  Transmission Date: 20151125
  Serious: No
  Sender: FDA-Public Use
  Company Number: US-BAYER-2015-408414

PATIENT
  Age: 67 Year
  Sex: Female
  Weight: 95.24 kg

DRUGS (5)
  1. ZIMSTAT [Concomitant]
     Active Substance: SIMVASTATIN
  2. TRAMADOL. [Concomitant]
     Active Substance: TRAMADOL
  3. MIRALAX [Suspect]
     Active Substance: POLYETHYLENE GLYCOL 3350
     Indication: CONSTIPATION
     Dosage: 1 DF, QD
     Route: 048
  4. PREDNISONE. [Concomitant]
     Active Substance: PREDNISONE
  5. LISINOPRIL. [Concomitant]
     Active Substance: LISINOPRIL

REACTIONS (2)
  - Flatulence [Recovered/Resolved]
  - Faeces soft [Recovered/Resolved]
